FAERS Safety Report 8203835-2 (Version None)
Quarter: 2012Q1

REPORT INFORMATION
  Report Type: 
  Country: None (occurrence: None)
  Receive Date: 20120308
  Receipt Date: 20120228
  Transmission Date: 20120608
  Serious: Yes (Hospitalization)
  Sender: FDA-Public Use
  Company Number: 2012SP011216

PATIENT
  Age: 24 Year
  Sex: Female

DRUGS (3)
  1. GONADORELIN INJ [Suspect]
     Indication: PRODUCT USED FOR UNKNOWN INDICATION
     Dosage: 0.5 DF, QD
     Dates: start: 20110426
  2. PUREGON (FOLLITROPIN BETA /01348901/) [Suspect]
     Indication: PRODUCT USED FOR UNKNOWN INDICATION
     Dosage: 1 DF, QD, SC
     Route: 058
     Dates: start: 20110506, end: 20110515
  3. CHORIONIC GONADOTROPIN [Suspect]
     Indication: PRODUCT USED FOR UNKNOWN INDICATION
     Dosage: 1 DF, ONCE, SC
     Route: 058
     Dates: start: 20110518, end: 20110518

REACTIONS (8)
  - ASCITES [None]
  - OXYGEN CONSUMPTION DECREASED [None]
  - BREATH SOUNDS ABNORMAL [None]
  - PLEURAL EFFUSION [None]
  - OVARIAN HYPERSTIMULATION SYNDROME [None]
  - HYPOALBUMINAEMIA [None]
  - DYSPNOEA [None]
  - VOMITING [None]
